APPROVED DRUG PRODUCT: MITOXANTRONE HYDROCHLORIDE
Active Ingredient: MITOXANTRONE HYDROCHLORIDE
Strength: EQ 20MG BASE/10ML (EQ 2MG BASE/ML)
Dosage Form/Route: INJECTABLE;INJECTION
Application: A201014 | Product #001
Applicant: RISING PHARMA HOLDINGS INC
Approved: Dec 11, 2012 | RLD: No | RS: No | Type: DISCN